FAERS Safety Report 16324810 (Version 1)
Quarter: 2019Q2

REPORT INFORMATION
  Report Type: Spontaneous
  Country: KR (occurrence: KR)
  Receive Date: 20190517
  Receipt Date: 20190517
  Transmission Date: 20190711
  Serious: Yes (Hospitalization)
  Sender: FDA-Public Use
  Company Number: KR-ROCHE-2316195

PATIENT
  Age: 35 Year
  Sex: Male

DRUGS (19)
  1. XYZAL [Suspect]
     Active Substance: LEVOCETIRIZINE DIHYDROCHLORIDE
     Indication: ANAPHYLACTIC REACTION
     Dosage: 10 MG, UNK
     Route: 048
  2. XOLAIR [Suspect]
     Active Substance: OMALIZUMAB
     Indication: ANAPHYLACTIC REACTION
     Dosage: 300 MG, EVERY 4-6 WEEKS
     Route: 058
     Dates: start: 20150910
  3. PSEUDOEPHEDRINE. [Suspect]
     Active Substance: PSEUDOEPHEDRINE HYDROCHLORIDE
     Indication: ANAPHYLACTIC REACTION
     Dosage: 120 MG, UNK
     Route: 065
  4. DEFLAZACORT [Concomitant]
     Active Substance: DEFLAZACORT
     Route: 065
  5. ALLEGRA [Concomitant]
     Active Substance: FEXOFENADINE HYDROCHLORIDE
     Route: 065
  6. CICLOSPORIN [Suspect]
     Active Substance: CYCLOSPORINE
     Indication: ANAPHYLACTIC REACTION
     Dosage: 100 MG, UNK
     Route: 065
  7. DEXAMETHASONE. [Suspect]
     Active Substance: DEXAMETHASONE
     Indication: ANAPHYLACTIC REACTION
     Dosage: 5 MG, UNK
     Route: 065
  8. XYZAL [Suspect]
     Active Substance: LEVOCETIRIZINE DIHYDROCHLORIDE
     Dosage: 5 MG, UNK
     Route: 048
  9. VENTOLIN [Suspect]
     Active Substance: ALBUTEROL SULFATE
     Indication: ANAPHYLACTIC REACTION
     Route: 055
  10. METHYLONE [Suspect]
     Active Substance: METHYLPREDNISOLONE
     Indication: ANAPHYLACTIC REACTION
     Dosage: 16 MG, UNK
     Route: 048
  11. METHYLONE [Suspect]
     Active Substance: METHYLPREDNISOLONE
     Dosage: 8 MG, UNK
     Route: 048
  12. EBASTINE [Suspect]
     Active Substance: EBASTINE
     Indication: ANAPHYLACTIC REACTION
     Dosage: 10 MG, UNK
     Route: 065
  13. XYZAL [Concomitant]
     Active Substance: LEVOCETIRIZINE DIHYDROCHLORIDE
     Route: 065
  14. ALLEGRA [Suspect]
     Active Substance: FEXOFENADINE HYDROCHLORIDE
     Indication: ANAPHYLACTIC REACTION
     Dosage: 180 MG, UNK
     Route: 048
  15. CHLORPHENAMINE [Suspect]
     Active Substance: CHLORPHENIRAMINE MALEATE
     Indication: ANAPHYLACTIC REACTION
     Dosage: 4 MG, UNK
     Route: 030
  16. CIMETIDINE [Suspect]
     Active Substance: CIMETIDINE
     Indication: ANAPHYLACTIC REACTION
     Route: 048
  17. CIMETIDINE [Concomitant]
     Active Substance: CIMETIDINE
     Route: 065
  18. DANAZOL. [Concomitant]
     Active Substance: DANAZOL
     Route: 065
  19. VENTOLIN [Concomitant]
     Active Substance: ALBUTEROL SULFATE
     Route: 065

REACTIONS (10)
  - Hypertension [Unknown]
  - Wheezing [Recovering/Resolving]
  - Anaphylactic reaction [Unknown]
  - Hypersensitivity [Recovering/Resolving]
  - Face oedema [Recovering/Resolving]
  - Alopecia [Unknown]
  - Product use in unapproved indication [Unknown]
  - Dyspnoea [Recovering/Resolving]
  - Rash [Unknown]
  - Angioedema [Unknown]
